FAERS Safety Report 21265591 (Version 1)
Quarter: 2022Q3

REPORT INFORMATION
  Report Type: Report from Study
  Country: FR (occurrence: FR)
  Receive Date: 20220829
  Receipt Date: 20220829
  Transmission Date: 20221027
  Serious: Yes (Other)
  Sender: FDA-Public Use
  Company Number: FR-PFIZER INC-202201095589

PATIENT
  Age: 27 Year

DRUGS (5)
  1. ALPRAZOLAM [Suspect]
     Active Substance: ALPRAZOLAM
  2. LORATADINE [Suspect]
     Active Substance: LORATADINE
  3. SPIRAMYCIN [Suspect]
     Active Substance: SPIRAMYCIN
  4. CYPROTERONE ACETATE [Concomitant]
     Active Substance: CYPROTERONE ACETATE
     Dosage: 30 MG, DAILY
  5. ESTRADIOL HEMIHYDRATE [Concomitant]
     Active Substance: ESTRADIOL HEMIHYDRATE

REACTIONS (1)
  - Suicide attempt [Recovered/Resolved]
